FAERS Safety Report 9128039 (Version 1)
Quarter: 2013Q1

REPORT INFORMATION
  Report Type: Spontaneous
  Country: DE (occurrence: DE)
  Receive Date: 20130122
  Receipt Date: 20130122
  Transmission Date: 20140127
  Serious: Yes (Hospitalization)
  Sender: FDA-Public Use
  Company Number: DE-SANOFI-AVENTIS-2013SA005020

PATIENT
  Age: 89 Year
  Sex: Female
  Weight: 60 kg

DRUGS (4)
  1. MULTAQ [Suspect]
     Indication: ATRIAL FIBRILLATION
     Dosage: DAILY DOSE: 800 MG MILLGRAM(S) EVERY DAYS
     Route: 048
     Dates: start: 201212
  2. MARCUMAR [Concomitant]
     Indication: ATRIAL FIBRILLATION
     Dosage: ACORDING TO INR
     Route: 048
     Dates: start: 2008
  3. TORASEMIDE [Concomitant]
     Indication: CARDIAC FAILURE
     Dosage: DAILY DOSE: 7.5 MG MILLGRAM(S) EVERY DAYS
     Route: 048
     Dates: start: 2011
  4. BELOC ZOK [Concomitant]
     Indication: ATRIAL FIBRILLATION
     Dosage: DAILY DOSE: 95 MG MILLGRAM(S) EVERY DAYS
     Route: 048
     Dates: start: 2008

REACTIONS (3)
  - Alveolitis [Not Recovered/Not Resolved]
  - Asthenia [Not Recovered/Not Resolved]
  - Dyspnoea exertional [Not Recovered/Not Resolved]
